FAERS Safety Report 4315827-4 (Version None)
Quarter: 2004Q1

REPORT INFORMATION
  Report Type: 
  Country: None (occurrence: None)
  Receive Date: 20040302
  Receipt Date: 20040119
  Transmission Date: 20041129
  Serious: Yes (Other)
  Sender: FDA-Public Use
  Company Number: US064555

PATIENT
  Age: 90 Year
  Sex: Female

DRUGS (7)
  1. ENBREL [Suspect]
     Indication: RHEUMATOID ARTHRITIS
     Dosage: 2 IN 1 WEEKS, SC
     Route: 058
     Dates: start: 20030301, end: 20030301
  2. DIPYRIDAMOLE [Suspect]
  3. ASPIRIN [Concomitant]
  4. LEVOTHRYOXINE SODIUM [Concomitant]
  5. SULFASALAZINE [Concomitant]
  6. METOPROLOL TARTRATE [Concomitant]
  7. ALENDRONATE SODIUM [Concomitant]

REACTIONS (1)
  - ANAEMIA [None]
